FAERS Safety Report 17285210 (Version 1)
Quarter: 2020Q1

REPORT INFORMATION
  Report Type: Spontaneous
  Country: GB (occurrence: GB)
  Receive Date: 20200117
  Receipt Date: 20200117
  Transmission Date: 20200409
  Serious: Yes (Other)
  Sender: FDA-Public Use
  Company Number: GB-NOVOPROD-705870

PATIENT
  Age: 62 Year
  Sex: Female
  Weight: 61.68 kg

DRUGS (1)
  1. VAGIFEM [Suspect]
     Active Substance: ESTRADIOL
     Indication: ATROPHIC VULVOVAGINITIS
     Dosage: 10 ?G, QOD
     Route: 067
     Dates: start: 20191203, end: 20191214

REACTIONS (4)
  - Urinary tract infection [Unknown]
  - Pain [Recovering/Resolving]
  - Product quality issue [Recovering/Resolving]
  - Drug ineffective [Recovering/Resolving]
